FAERS Safety Report 23728296 (Version 1)
Quarter: 2024Q2

REPORT INFORMATION
  Report Type: Spontaneous
  Country: US (occurrence: US)
  Receive Date: 20240410
  Receipt Date: 20240410
  Transmission Date: 20240715
  Serious: Yes (Other)
  Sender: FDA-Public Use
  Company Number: US-BRISTOL-MYERS SQUIBB COMPANY-2024-054386

PATIENT

DRUGS (2)
  1. BELATACEPT [Suspect]
     Active Substance: BELATACEPT
     Indication: Heart transplant
     Dosage: 3-5 DOSES
  2. BELATACEPT [Suspect]
     Active Substance: BELATACEPT

REACTIONS (2)
  - Cytomegalovirus viraemia [Unknown]
  - Off label use [Unknown]
